FAERS Safety Report 16021202 (Version 1)
Quarter: 2019Q1

REPORT INFORMATION
  Report Type: Spontaneous
  Country: US (occurrence: US)
  Receive Date: 20190201
  Receipt Date: 20190201
  Transmission Date: 20190418
  Serious: Yes (Hospitalization)
  Sender: FDA-Public Use
  Company Number: None

PATIENT
  Age: 62 Year
  Sex: Female
  Weight: 71 kg

DRUGS (1)
  1. VOSEVI [Suspect]
     Active Substance: SOFOSBUVIR\VELPATASVIR\VOXILAPREVIR
     Indication: HEPATITIS C
     Dosage: ?          OTHER DOSE:400-100 MG;?
     Route: 048
     Dates: start: 20171207, end: 20171210

REACTIONS (2)
  - Hepatic vascular thrombosis [None]
  - Clostridium test positive [None]

NARRATIVE: CASE EVENT DATE: 20171207
